FAERS Safety Report 10179429 (Version 5)
Quarter: 2016Q1

REPORT INFORMATION
  Report Type: Spontaneous
  Country: US (occurrence: US)
  Receive Date: 20140519
  Receipt Date: 20160225
  Transmission Date: 20160525
  Serious: Yes (Hospitalization, Other)
  Sender: FDA-Public Use
  Company Number: US-009507513-1405USA004514

PATIENT
  Sex: Female

DRUGS (4)
  1. FOSAMAX [Suspect]
     Active Substance: ALENDRONATE SODIUM
     Indication: OSTEOPOROSIS
     Dosage: 70 MG, QW
     Route: 048
     Dates: start: 199704, end: 201011
  2. ALENDRONATE SODIUM. [Suspect]
     Active Substance: ALENDRONATE SODIUM
     Indication: OSTEOPOROSIS
     Dosage: 70 MG, QW
     Route: 048
     Dates: start: 201011, end: 201103
  3. CYANOCOBALAMIN. [Concomitant]
     Active Substance: CYANOCOBALAMIN
     Indication: ROUTINE HEALTH MAINTENANCE
     Dosage: 500 MG, UNK
     Route: 065
     Dates: start: 1990
  4. CHOLECALCIFEROL [Concomitant]
     Active Substance: CHOLECALCIFEROL
     Indication: ROUTINE HEALTH MAINTENANCE
     Dosage: 1000 IU, UNK
     Route: 065
     Dates: start: 1990

REACTIONS (17)
  - Presyncope [Unknown]
  - Osteopenia [Unknown]
  - Neuropathy peripheral [Unknown]
  - Osteoarthritis [Unknown]
  - Osteoporosis [Unknown]
  - Tympanic membrane perforation [Unknown]
  - Spinal laminectomy [Unknown]
  - Cataract operation [Unknown]
  - Gastrooesophageal reflux disease [Unknown]
  - Hypoacusis [Unknown]
  - Osteoarthritis [Unknown]
  - Fall [Unknown]
  - Tonsillectomy [Unknown]
  - Femur fracture [Recovered/Resolved]
  - Cervical vertebral fracture [Unknown]
  - Hypertension [Unknown]
  - Appendicectomy [Unknown]

NARRATIVE: CASE EVENT DATE: 2009
